FAERS Safety Report 25343505 (Version 1)
Quarter: 2025Q2

REPORT INFORMATION
  Report Type: Spontaneous
  Country: IT (occurrence: IT)
  Receive Date: 20250521
  Receipt Date: 20250521
  Transmission Date: 20250716
  Serious: Yes (Other)
  Sender: EISAI
  Company Number: None

PATIENT
  Age: 78 Year
  Sex: Female
  Weight: 39 kg

DRUGS (2)
  1. LENVIMA [Suspect]
     Active Substance: LENVATINIB
     Indication: Endometrial cancer
     Dates: start: 20250408, end: 20250429
  2. KEYTRUDA [Suspect]
     Active Substance: PEMBROLIZUMAB
     Indication: Endometrial cancer
     Dates: start: 20241219, end: 20250408

REACTIONS (2)
  - Thrombotic microangiopathy [Not Recovered/Not Resolved]
  - Focal segmental glomerulosclerosis [Not Recovered/Not Resolved]

NARRATIVE: CASE EVENT DATE: 20250429
